FAERS Safety Report 4686332-0 (Version None)
Quarter: 2005Q2

REPORT INFORMATION
  Report Type: 
  Country: None (occurrence: None)
  Receive Date: 20050606
  Receipt Date: 20050525
  Transmission Date: 20051028
  Serious: Yes (Disabling, Other)
  Sender: FDA-Public Use
  Company Number: 2005080170

PATIENT
  Age: 88 Year
  Sex: Male
  Weight: 89.8122 kg

DRUGS (4)
  1. CELEBREX [Suspect]
     Indication: ARTHRITIS
     Dosage: 400 MG (200 MG, 2 IN 1 D)
  2. WARFARIN SODIUM [Concomitant]
  3. ASPIRIN [Concomitant]
  4. PENTOXIFYLLINE (PENTOXYIFYLLINE) [Concomitant]

REACTIONS (7)
  - BLISTER [None]
  - CEREBROVASCULAR ACCIDENT [None]
  - HAEMORRHAGE [None]
  - HYPERVENTILATION [None]
  - INSOMNIA [None]
  - MUSCULOSKELETAL STIFFNESS [None]
  - TINEA PEDIS [None]
